FAERS Safety Report 20670369 (Version 2)
Quarter: 2022Q2

REPORT INFORMATION
  Report Type: Spontaneous
  Country: GB (occurrence: GB)
  Receive Date: 20220404
  Receipt Date: 20220418
  Transmission Date: 20220721
  Serious: Yes (Hospitalization, Disabling)
  Sender: FDA-Public Use
  Company Number: GB-ANIPHARMA-2022-UK-000076

PATIENT
  Age: 55 Year
  Sex: Female

DRUGS (4)
  1. CANDESARTAN CILEXETIL [Suspect]
     Active Substance: CANDESARTAN CILEXETIL
     Indication: Adverse drug reaction
     Dosage: 24 MG
     Route: 065
     Dates: end: 202203
  2. AMLODIPINE BESYLATE [Concomitant]
     Active Substance: AMLODIPINE BESYLATE
     Route: 065
  3. ATROVENT [Concomitant]
     Active Substance: IPRATROPIUM BROMIDE
     Route: 065
  4. DALTEPARIN [Concomitant]
     Active Substance: DALTEPARIN
     Route: 065
     Dates: start: 202102

REACTIONS (8)
  - Feeling of body temperature change [Recovering/Resolving]
  - Tremor [Recovered/Resolved]
  - Tinnitus [Recovering/Resolving]
  - Adverse drug reaction [Recovering/Resolving]
  - Blood sodium decreased [Recovering/Resolving]
  - Arthralgia [Recovering/Resolving]
  - Fatigue [Recovering/Resolving]
  - Dyspnoea [Recovering/Resolving]

NARRATIVE: CASE EVENT DATE: 20220201
